FAERS Safety Report 6353617-1 (Version None)
Quarter: 2009Q3

REPORT INFORMATION
  Report Type: 
  Country: None (occurrence: None)
  Receive Date: 20090912
  Receipt Date: 20090622
  Transmission Date: 20100115
  Serious: No
  Sender: FDA-Public Use
  Company Number: US-ABBOTT-08P-163-0460143-00

PATIENT
  Sex: Female
  Weight: 59.02 kg

DRUGS (3)
  1. HUMIRA [Suspect]
     Indication: PSORIATIC ARTHROPATHY
     Dates: start: 20080604
  2. VICODIN [Concomitant]
     Indication: PAIN
     Dosage: ONE EVERY FOUR HOURS PRN
     Route: 048
  3. PROMETHAZINE [Concomitant]
     Dosage: 25 MILLIGRAM EVERY FOUR TO SIX HURS PRN
     Route: 048

REACTIONS (4)
  - ACCIDENTAL EXPOSURE [None]
  - ALOPECIA [None]
  - INJECTION SITE PAIN [None]
  - STRESS [None]
